FAERS Safety Report 25802567 (Version 1)
Quarter: 2025Q3

REPORT INFORMATION
  Report Type: Spontaneous
  Country: US (occurrence: None)
  Receive Date: 20250914
  Receipt Date: 20250914
  Transmission Date: 20251021
  Serious: No
  Sender: FDA-CTU
  Company Number: None

PATIENT
  Age: 56 Year
  Sex: Female
  Weight: 68.4 kg

DRUGS (1)
  1. OZEMPIC [Suspect]
     Active Substance: SEMAGLUTIDE

REACTIONS (4)
  - Therapeutic response unexpected [None]
  - Weight increased [None]
  - Obstructive sleep apnoea syndrome [None]
  - Disease recurrence [None]

NARRATIVE: CASE EVENT DATE: 20240408
